FAERS Safety Report 13204060 (Version 1)
Quarter: 2017Q1

REPORT INFORMATION
  Report Type: Spontaneous
  Country: US (occurrence: US)
  Receive Date: 20170209
  Receipt Date: 20170209
  Transmission Date: 20170428
  Serious: No
  Sender: FDA-Public Use
  Company Number: US-ASTRAZENECA-2017SE13401

PATIENT
  Sex: Female

DRUGS (10)
  1. METFORMIN [Suspect]
     Active Substance: METFORMIN HYDROCHLORIDE
     Indication: TYPE 2 DIABETES MELLITUS
     Dosage: NON AZ DRUG
     Route: 048
     Dates: start: 2003, end: 201603
  2. GLIPIZIDE. [Concomitant]
     Active Substance: GLIPIZIDE
     Indication: TYPE 2 DIABETES MELLITUS
     Dosage: DAILY
     Route: 048
     Dates: start: 2005
  3. BYETTA [Suspect]
     Active Substance: EXENATIDE
     Indication: TYPE 2 DIABETES MELLITUS
     Route: 058
  4. BYDUREON [Suspect]
     Active Substance: EXENATIDE
     Indication: TYPE 2 DIABETES MELLITUS
     Route: 065
     Dates: start: 2012, end: 2015
  5. ACTOS [Concomitant]
     Active Substance: PIOGLITAZONE HYDROCHLORIDE
     Indication: TYPE 2 DIABETES MELLITUS
     Dosage: UNKNOWN
     Route: 048
     Dates: start: 2010
  6. METFORMIN [Suspect]
     Active Substance: METFORMIN HYDROCHLORIDE
     Indication: TYPE 2 DIABETES MELLITUS
     Dosage: METFORMIN XR
     Route: 048
  7. LANTUS [Concomitant]
     Active Substance: INSULIN GLARGINE
     Indication: TYPE 2 DIABETES MELLITUS
     Dosage: 32 UNITS IN THE MORNING AND 22 UNITS IN THE EVENING
  8. BYETTA [Suspect]
     Active Substance: EXENATIDE
     Indication: TYPE 2 DIABETES MELLITUS
     Route: 058
     Dates: start: 20161220
  9. LISINOPRIL. [Suspect]
     Active Substance: LISINOPRIL
     Route: 048
  10. BYETTA [Suspect]
     Active Substance: EXENATIDE
     Indication: TYPE 2 DIABETES MELLITUS
     Dosage: DOSAGE LESS THAN 20 UNITS
     Route: 058
     Dates: start: 2009, end: 2012

REACTIONS (8)
  - Palpitations [Unknown]
  - Injection site mass [Unknown]
  - Weight decreased [Unknown]
  - Hyperhidrosis [Unknown]
  - Drug hypersensitivity [Unknown]
  - Fluid retention [Unknown]
  - Drug dose omission [Unknown]
  - Intentional product misuse [Unknown]
